FAERS Safety Report 4623224-7 (Version None)
Quarter: 2005Q1

REPORT INFORMATION
  Report Type: 
  Country: None (occurrence: None)
  Receive Date: 20050330
  Receipt Date: 20050308
  Transmission Date: 20050727
  Serious: Yes (Hospitalization, Other)
  Sender: FDA-Public Use
  Company Number: US_0411108209

PATIENT
  Age: 40 Year
  Sex: Female
  Weight: 130 kg

DRUGS (24)
  1. ZYPREXA [Suspect]
     Indication: BIPOLAR DISORDER
     Dosage: 10 MG/1 DAY
     Dates: start: 20000414, end: 20010730
  2. SERZONE [Concomitant]
  3. RISPERDAL [Concomitant]
  4. DEPAKOTE [Concomitant]
  5. HYDROCHLOROTHIAZIDE [Concomitant]
  6. LEVOTHYROXINE [Concomitant]
  7. ESTRADIOL [Concomitant]
  8. HYDROCODONE W/APAP [Concomitant]
  9. COZAAR [Concomitant]
  10. LIPITOR [Concomitant]
  11. NEURONTIN (GABAPENTIN PFIZER) [Concomitant]
  12. AMITRIPTYLINE HCL TAB [Concomitant]
  13. METOCLOPRAMIDE [Concomitant]
  14. CLONIDINE [Concomitant]
  15. IMITREX [Concomitant]
  16. TOPAMAX [Concomitant]
  17. NORVASC [Concomitant]
  18. IBUPROFEN [Concomitant]
  19. NICOTROL (NICOTINE) [Concomitant]
  20. VIOXX [Concomitant]
  21. SKELAXIN [Concomitant]
  22. ULTRAM [Concomitant]
  23. ZANAFLEX [Concomitant]
  24. AMBIEN [Concomitant]

REACTIONS (47)
  - ABDOMINAL DISTENSION [None]
  - ACCIDENTAL EXPOSURE [None]
  - ANAEMIA [None]
  - ANOREXIA [None]
  - ASTHENIA [None]
  - BRONCHITIS [None]
  - BULIMIA NERVOSA [None]
  - CHOLELITHIASIS [None]
  - COMA [None]
  - COMPULSIONS [None]
  - CONSTIPATION [None]
  - DIABETES MELLITUS NON-INSULIN-DEPENDENT [None]
  - DISORIENTATION [None]
  - DRUG DEPENDENCE [None]
  - DRUG WITHDRAWAL SYNDROME [None]
  - EAR PAIN [None]
  - EATING DISORDER [None]
  - ELECTROCARDIOGRAM ABNORMAL [None]
  - FATIGUE [None]
  - FIBROMYALGIA [None]
  - GASTRITIS [None]
  - GASTROOESOPHAGEAL REFLUX DISEASE [None]
  - HEPATIC ENZYME INCREASED [None]
  - HEPATIC MASS [None]
  - HERPES SIMPLEX [None]
  - HYPERCHOLESTEROLAEMIA [None]
  - HYPERLIPIDAEMIA [None]
  - HYPERTENSION [None]
  - HYPOGLYCAEMIA [None]
  - INSOMNIA [None]
  - IRRITABLE BOWEL SYNDROME [None]
  - JOINT SPRAIN [None]
  - MANIA [None]
  - MENINGIOMA [None]
  - MENTAL STATUS CHANGES [None]
  - NEPHROLITHIASIS [None]
  - OBESITY [None]
  - PANCREATITIS [None]
  - PANCREATITIS CHRONIC [None]
  - RHINITIS [None]
  - SINUSITIS [None]
  - SKIN PAPILLOMA [None]
  - SLEEP APNOEA SYNDROME [None]
  - UPPER RESPIRATORY TRACT INFECTION [None]
  - VISION BLURRED [None]
  - WEIGHT DECREASED [None]
  - WEIGHT INCREASED [None]
